FAERS Safety Report 17418349 (Version 1)
Quarter: 2020Q1

REPORT INFORMATION
  Report Type: Report from Study
  Country: CO (occurrence: CO)
  Receive Date: 20200214
  Receipt Date: 20200214
  Transmission Date: 20200409
  Serious: Yes (Hospitalization)
  Sender: FDA-Public Use
  Company Number: CO-ROCHE-2474191

PATIENT
  Sex: Female

DRUGS (3)
  1. CELLCEPT [Suspect]
     Active Substance: MYCOPHENOLATE MOFETIL\MYCOPHENOLATE MOFETIL HYDROCHLORIDE
     Indication: PRODUCT USED FOR UNKNOWN INDICATION
     Route: 048
  2. VALIXA [Suspect]
     Active Substance: VALGANCICLOVIR
     Indication: PRODUCT USED FOR UNKNOWN INDICATION
     Dosage: ONE DAILY
     Route: 048
  3. EPOETIN BETA [Suspect]
     Active Substance: ERYTHROPOIETIN
     Indication: PRODUCT USED FOR UNKNOWN INDICATION
     Route: 065

REACTIONS (15)
  - Somnolence [Unknown]
  - Immunodeficiency [Unknown]
  - Influenza [Unknown]
  - Oropharyngeal pain [Unknown]
  - Chest pain [Unknown]
  - Ear pain [Unknown]
  - Pain [Unknown]
  - Agitation [Unknown]
  - Parvovirus infection [Unknown]
  - Nausea [Unknown]
  - Anaemia [Unknown]
  - Facial pain [Unknown]
  - Lower respiratory tract congestion [Unknown]
  - Headache [Unknown]
  - Asthenia [Unknown]
